FAERS Safety Report 15680638 (Version 1)
Quarter: 2018Q4

REPORT INFORMATION
  Report Type: Spontaneous
  Country: US (occurrence: US)
  Receive Date: 20181120
  Receipt Date: 20181120
  Transmission Date: 20190205
  Serious: Yes (Hospitalization)
  Sender: FDA-Public Use
  Company Number: None

PATIENT
  Age: 51 Year
  Sex: Female

DRUGS (18)
  1. MYCOPHENOLATE [Concomitant]
     Active Substance: MYCOPHENOLIC ACID
  2. DOK [Concomitant]
     Active Substance: DOCUSATE SODIUM
  3. MAGNESIUM [Concomitant]
     Active Substance: MAGNESIUM
  4. MULTI VIT [Concomitant]
  5. FOLIC ACID. [Concomitant]
     Active Substance: FOLIC ACID
  6. TACROLIMUS. [Suspect]
     Active Substance: TACROLIMUS
     Indication: HEART TRANSPLANT
     Route: 048
     Dates: start: 20181115
  7. PANTOPRAZOLE [Concomitant]
     Active Substance: PANTOPRAZOLE
  8. CLOTRIMAZOLE. [Concomitant]
     Active Substance: CLOTRIMAZOLE
  9. FEROSUL [Concomitant]
  10. APAP/CODEINE [Concomitant]
     Active Substance: ACETAMINOPHEN\CODEINE PHOSPHATE
  11. NOVOLOG [Concomitant]
     Active Substance: INSULIN ASPART
  12. SMZ-TMP [Concomitant]
     Active Substance: SULFAMETHOXAZOLE\TRIMETHOPRIM
  13. VALGANCICLOV [Concomitant]
  14. ASPIRIN. [Concomitant]
     Active Substance: ASPIRIN
  15. PRAVASTATIN. [Concomitant]
     Active Substance: PRAVASTATIN
  16. TACROLIMUS. [Concomitant]
     Active Substance: TACROLIMUS
  17. LEVEMIR [Concomitant]
     Active Substance: INSULIN DETEMIR
  18. PREDNISONE. [Concomitant]
     Active Substance: PREDNISONE

REACTIONS (1)
  - Hospitalisation [None]

NARRATIVE: CASE EVENT DATE: 20181115
